FAERS Safety Report 8921027 (Version 2)
Quarter: 2013Q2

REPORT INFORMATION
  Report Type: Spontaneous
  Country: US (occurrence: US)
  Receive Date: 20121122
  Receipt Date: 20130403
  Transmission Date: 20140414
  Serious: Yes (Other)
  Sender: FDA-Public Use
  Company Number: US-ROCHE-1035110

PATIENT
  Age: 14 Year
  Sex: Male
  Weight: 88.98 kg

DRUGS (3)
  1. ACCUTANE [Suspect]
     Indication: ACNE
     Route: 065
     Dates: start: 199805, end: 199809
  2. ACCUTANE [Suspect]
     Route: 065
     Dates: start: 199911, end: 200004
  3. ACCUTANE [Suspect]
     Route: 065
     Dates: end: 2002

REACTIONS (9)
  - Crohn^s disease [Unknown]
  - Inflammatory bowel disease [Unknown]
  - Anxiety [Unknown]
  - Colitis ulcerative [Unknown]
  - Intestinal obstruction [Unknown]
  - Depression [Unknown]
  - Intestinal haemorrhage [Unknown]
  - Lip dry [Unknown]
  - Nasal dryness [Unknown]
